FAERS Safety Report 7912611-7 (Version None)
Quarter: 2011Q4

REPORT INFORMATION
  Report Type: 
  Country: None (occurrence: None)
  Receive Date: 20111114
  Receipt Date: 20111103
  Transmission Date: 20120403
  Serious: Yes (Life-Threatening)
  Sender: FDA-Public Use
  Company Number: GB-EISAI INC-E7389-01723-SPO-GB

PATIENT
  Age: 70 Year
  Sex: Female
  Weight: 75 kg

DRUGS (1)
  1. HALAVEN [Suspect]
     Dosage: UNKNOWN
     Route: 042
     Dates: start: 20111005, end: 20111005

REACTIONS (1)
  - CEREBROVASCULAR ACCIDENT [None]
